FAERS Safety Report 6542989-0 (Version None)
Quarter: 2010Q1

REPORT INFORMATION
  Report Type: 
  Country: None (occurrence: None)
  Receive Date: 20100120
  Receipt Date: 20100112
  Transmission Date: 20100710
  Serious: Yes (Hospitalization)
  Sender: FDA-Public Use
  Company Number: JP-ROCHE-673992

PATIENT
  Sex: Female
  Weight: 58 kg

DRUGS (5)
  1. XELODA [Suspect]
     Indication: COLON CANCER
     Dosage: DRUG: XELODA 300(CAPECITABINE), NOTE: 2 WEEKS ADMINISTRATION FOLLOWED BY 1 WEEK REST.
     Route: 048
     Dates: start: 20091023, end: 20091126
  2. BLOPRESS [Concomitant]
     Route: 048
  3. AMLODIPINE [Concomitant]
     Route: 048
  4. MEVALOTIN [Concomitant]
     Route: 048
  5. PROTECADIN [Concomitant]
     Route: 048

REACTIONS (3)
  - ENTEROCOLITIS [None]
  - ILEITIS [None]
  - PALMAR-PLANTAR ERYTHRODYSAESTHESIA SYNDROME [None]
